FAERS Safety Report 17233115 (Version 2)
Quarter: 2022Q2

REPORT INFORMATION
  Report Type: Report from Study
  Country: US (occurrence: US)
  Receive Date: 20200104
  Receipt Date: 20220511
  Transmission Date: 20220721
  Serious: No
  Sender: FDA-Public Use
  Company Number: US-TEVAE2B_PROD-TEVA-US-27DEC2019-3633

PATIENT
  Age: 35 Year
  Sex: Female

DRUGS (1)
  1. CLARAVIS [Suspect]
     Active Substance: ISOTRETINOIN
     Indication: Acne
     Route: 065
     Dates: start: 201910

REACTIONS (3)
  - Cough [Unknown]
  - Sneezing [Unknown]
  - Bone pain [Unknown]

NARRATIVE: CASE EVENT DATE: 20191225
